FAERS Safety Report 8084356-7 (Version None)
Quarter: 2012Q1

REPORT INFORMATION
  Report Type: 
  Country: None (occurrence: None)
  Receive Date: 20120128
  Receipt Date: 20110131
  Transmission Date: 20120608
  Serious: No
  Sender: FDA-Public Use
  Company Number: US-ABBOTT-11P-163-0701670-00

PATIENT
  Age: 27 Year
  Sex: Male

DRUGS (2)
  1. COOBEX [Concomitant]
     Indication: PSORIASIS
     Route: 061
  2. HUMIRA [Suspect]
     Indication: PSORIASIS
     Dates: start: 20101201

REACTIONS (2)
  - DRUG DOSE OMISSION [None]
  - PSORIASIS [None]
